FAERS Safety Report 6227478-5 (Version None)
Quarter: 2009Q2

REPORT INFORMATION
  Report Type: 
  Country: None (occurrence: None)
  Receive Date: 20090612
  Receipt Date: 20090602
  Transmission Date: 20091009
  Serious: Yes (Other)
  Sender: FDA-Public Use
  Company Number: PHHY2009VE22267

PATIENT
  Sex: Female

DRUGS (4)
  1. ACLASTA [Suspect]
     Indication: OSTEOPOROSIS
     Dosage: 5 MG, UNK
     Route: 042
     Dates: start: 20090529
  2. CALCIBON D MAGNESIO [Concomitant]
     Dosage: 1500 MG DAILY
     Dates: start: 20030101
  3. CHONDROITIN A [Concomitant]
     Dosage: 1500 MG DAILY
     Dates: start: 20070101
  4. GLUCOSAMINE [Concomitant]

REACTIONS (5)
  - PIGMENTATION DISORDER [None]
  - PRURITUS GENERALISED [None]
  - SKIN EXFOLIATION [None]
  - STEVENS-JOHNSON SYNDROME [None]
  - VASCULITIS [None]
